FAERS Safety Report 5575758-9 (Version None)
Quarter: 2007Q4

REPORT INFORMATION
  Report Type: 
  Country: None (occurrence: None)
  Receive Date: 20071221
  Receipt Date: 20071210
  Transmission Date: 20080405
  Serious: Yes (Other)
  Sender: FDA-Public Use
  Company Number: 230046M07FRA

PATIENT
  Age: 53 Year
  Sex: Female
  Weight: 51 kg

DRUGS (1)
  1. REBIF [Suspect]
     Dosage: SUBCUTANEOUS
     Route: 058

REACTIONS (2)
  - CHOLELITHIASIS [None]
  - HEPATITIS A [None]
